FAERS Safety Report 22085217 (Version 1)
Quarter: 2023Q1

REPORT INFORMATION
  Report Type: Report from Study
  Country: US (occurrence: US)
  Receive Date: 20230310
  Receipt Date: 20230310
  Transmission Date: 20230417
  Serious: Yes (Other)
  Sender: FDA-Public Use
  Company Number: US-TEVA-2023-US-2863918

PATIENT
  Age: 37 Year
  Sex: Female

DRUGS (1)
  1. AUSTEDO [Suspect]
     Active Substance: DEUTETRABENAZINE
     Indication: Tardive dyskinesia
     Dosage: 48 MILLIGRAM DAILY;
     Route: 065
     Dates: start: 202003

REACTIONS (4)
  - Suicidal ideation [Unknown]
  - Dyskinesia [Unknown]
  - Hypermetabolism [Unknown]
  - Drug ineffective [Unknown]
